FAERS Safety Report 21180235 (Version 1)
Quarter: 2022Q3

REPORT INFORMATION
  Report Type: Other
  Country: GB (occurrence: GB)
  Receive Date: 20220806
  Receipt Date: 20220806
  Transmission Date: 20221026
  Serious: No
  Sender: FDA-Public Use
  Company Number: None

PATIENT
  Age: 91 Year
  Sex: Female
  Weight: 74 kg

DRUGS (3)
  1. SERTRALINE [Suspect]
     Active Substance: SERTRALINE HYDROCHLORIDE
     Indication: Mixed anxiety and depressive disorder
     Dosage: 50 MILLIGRAM, QD, IN THE MORNING (TABLET-UNCOATED)
     Route: 048
     Dates: start: 20220705
  2. FLUOROURACIL [Concomitant]
     Active Substance: FLUOROURACIL
     Indication: Skin lesion
     Dosage: 40 GRAM, BID (APPLY THINLY TWICE A DAY FOR 3W)
     Route: 065
     Dates: start: 20220422, end: 20220604
  3. IBUPROFEN [Concomitant]
     Active Substance: IBUPROFEN
     Indication: Product used for unknown indication
     Dosage: 100 GRAM, TID (APPLY UP TO THREE TIMES A DAY FOR UP TO 2 WEEKS)
     Route: 065
     Dates: start: 20220422, end: 20220604

REACTIONS (1)
  - Dry mouth [Unknown]
